FAERS Safety Report 18375408 (Version 1)
Quarter: 2020Q4

REPORT INFORMATION
  Report Type: Spontaneous
  Country: US (occurrence: US)
  Receive Date: 20201011
  Receipt Date: 20201011
  Transmission Date: 20210114
  Serious: Yes (Other)
  Sender: FDA-Public Use
  Company Number: None

PATIENT
  Age: 21 Year
  Sex: Male
  Weight: 120 kg

DRUGS (4)
  1. ENOXAPARIN 40MG SUBQ DAILY [Concomitant]
  2. REMDESIVIR. [Suspect]
     Active Substance: REMDESIVIR
     Indication: COVID-19
     Route: 042
     Dates: start: 20201009, end: 20201011
  3. LEVETIRACETAM 1000MG TWICE DAILY [Concomitant]
     Dates: start: 20201009
  4. DEXAMETHASONE 4MG THREE TIMES DAILY ORALLY [Concomitant]

REACTIONS (8)
  - Hepatotoxicity [None]
  - Blood bilirubin increased [None]
  - Seizure [None]
  - Aspartate aminotransferase increased [None]
  - International normalised ratio increased [None]
  - Prothrombin time prolonged [None]
  - Alanine aminotransferase increased [None]
  - Blood creatine phosphokinase increased [None]

NARRATIVE: CASE EVENT DATE: 20201010
